FAERS Safety Report 21990709 (Version 1)
Quarter: 2023Q1

REPORT INFORMATION
  Report Type: Spontaneous
  Country: ES (occurrence: ES)
  Receive Date: 20230214
  Receipt Date: 20230214
  Transmission Date: 20230417
  Serious: Yes (Life-Threatening)
  Sender: FDA-Public Use
  Company Number: None

PATIENT
  Age: 71 Year
  Sex: Male
  Weight: 70 kg

DRUGS (4)
  1. QUETIAPINE [Interacting]
     Active Substance: QUETIAPINE
     Indication: Nervousness
     Dosage: 25 MILLIGRAM, QD
     Route: 048
     Dates: start: 20201212, end: 20201220
  2. TRAZODONE HYDROCHLORIDE [Interacting]
     Active Substance: TRAZODONE HYDROCHLORIDE
     Indication: Insomnia
     Dosage: 50 MILLIGRAM, QD
     Route: 048
     Dates: start: 20201209, end: 20201227
  3. FLUCONAZOLE [Interacting]
     Active Substance: FLUCONAZOLE
     Indication: Endotracheal intubation
     Dosage: 400 MG
     Route: 042
     Dates: start: 20201219, end: 20210103
  4. HALOPERIDOL [Interacting]
     Active Substance: HALOPERIDOL
     Indication: Nervousness
     Dosage: 2.5 MILLIGRAM
     Route: 042
     Dates: start: 20201218, end: 20201222

REACTIONS (2)
  - Neuroleptic malignant syndrome [Recovered/Resolved]
  - Drug interaction [Unknown]

NARRATIVE: CASE EVENT DATE: 20201219
